FAERS Safety Report 25186818 (Version 2)
Quarter: 2025Q2

REPORT INFORMATION
  Report Type: Other
  Country: CA (occurrence: CA)
  Receive Date: 20250411
  Receipt Date: 20250513
  Transmission Date: 20250717
  Serious: Yes (Other)
  Sender: INTERCEPT PHARMACEUTICALS
  Company Number: CA-INTERCEPT-PMOCA2018000599

PATIENT
  Age: 49 Year
  Sex: Female

DRUGS (10)
  1. OCALIVA [Suspect]
     Active Substance: OBETICHOLIC ACID
     Indication: Primary biliary cholangitis
     Dosage: 5 MG, QD (30 PILLS PER BOTTLE)
     Route: 048
     Dates: start: 20180216, end: 2018
  2. OCALIVA [Suspect]
     Active Substance: OBETICHOLIC ACID
     Dosage: 5 MG, WEEKLY
     Route: 048
     Dates: start: 2018, end: 2018
  3. OCALIVA [Suspect]
     Active Substance: OBETICHOLIC ACID
     Dosage: 10 MG, WEEKLY (5 MG, 2X/WK)
     Route: 048
     Dates: start: 20180524
  4. OCALIVA [Suspect]
     Active Substance: OBETICHOLIC ACID
     Dosage: 10 MG, WEEKLY
     Route: 048
  5. OCALIVA [Suspect]
     Active Substance: OBETICHOLIC ACID
     Dosage: 10 MG, WEEKLY (5 MG, 2X/WK)
     Route: 048
     Dates: start: 20180524
  6. OCALIVA [Suspect]
     Active Substance: OBETICHOLIC ACID
     Dosage: 20 MG, WEEKLY (10 MG, 2X/WK)
     Route: 048
     Dates: end: 20250423
  7. OCALIVA [Suspect]
     Active Substance: OBETICHOLIC ACID
     Route: 048
  8. OCALIVA [Suspect]
     Active Substance: OBETICHOLIC ACID
     Route: 048
  9. OCALIVA [Suspect]
     Active Substance: OBETICHOLIC ACID
     Route: 048
  10. URSODIOL [Concomitant]
     Active Substance: URSODIOL
     Dosage: 1500 MG, QD

REACTIONS (19)
  - Liver sarcoidosis [Unknown]
  - Nausea [Not Recovered/Not Resolved]
  - Insomnia [Not Recovered/Not Resolved]
  - Headache [Not Recovered/Not Resolved]
  - Alopecia [Not Recovered/Not Resolved]
  - Weight increased [Not Recovered/Not Resolved]
  - Onychoclasis [Not Recovered/Not Resolved]
  - Bilirubin conjugated abnormal [Unknown]
  - Blood test abnormal [Not Recovered/Not Resolved]
  - Depressed mood [Not Recovered/Not Resolved]
  - Anger [Not Recovered/Not Resolved]
  - Gamma-glutamyltransferase abnormal [Unknown]
  - Aspartate aminotransferase abnormal [Unknown]
  - Blood alkaline phosphatase abnormal [Not Recovered/Not Resolved]
  - Asthenia [Not Recovered/Not Resolved]
  - Pruritus [Not Recovered/Not Resolved]
  - Fatigue [Not Recovered/Not Resolved]
  - Off label use [Unknown]
  - Therapy cessation [Unknown]

NARRATIVE: CASE EVENT DATE: 20201109
